FAERS Safety Report 6908325-2 (Version None)
Quarter: 2010Q3

REPORT INFORMATION
  Report Type: 
  Country: None (occurrence: None)
  Receive Date: 20100805
  Receipt Date: 20100802
  Transmission Date: 20110219
  Serious: Yes (Hospitalization)
  Sender: FDA-Public Use
  Company Number: HU-ROCHE-718687

PATIENT
  Sex: Female
  Weight: 49.8 kg

DRUGS (4)
  1. PEGINTERFERON ALFA-2A [Suspect]
     Indication: PRODUCT USED FOR UNKNOWN INDICATION
     Route: 050
     Dates: start: 20100329
  2. CLONAZEPAM [Concomitant]
     Dates: start: 20030915
  3. LAMOTRIGINE [Concomitant]
     Dates: start: 20030815
  4. OXCARBAZEPINE [Concomitant]
     Dates: start: 20030815

REACTIONS (2)
  - ABDOMINAL WALL ABSCESS [None]
  - PERITONITIS [None]
